FAERS Safety Report 16410452 (Version 2)
Quarter: 2019Q3

REPORT INFORMATION
  Report Type: Spontaneous
  Country: US (occurrence: US)
  Receive Date: 20190610
  Receipt Date: 20190819
  Transmission Date: 20191004
  Serious: No
  Sender: FDA-Public Use
  Company Number: US-PFIZER INC-2019242931

PATIENT
  Age: 70 Year
  Sex: Female
  Weight: 58.97 kg

DRUGS (3)
  1. VERAPAMIL HCL [Suspect]
     Active Substance: VERAPAMIL HYDROCHLORIDE
     Dosage: 3.5 MG, UNK
  2. VERAPAMIL HCL [Suspect]
     Active Substance: VERAPAMIL HYDROCHLORIDE
     Dosage: 7 MG, UNK
  3. VERAPAMIL HCL [Suspect]
     Active Substance: VERAPAMIL HYDROCHLORIDE
     Indication: MIGRAINE
     Dosage: 7.5 MG, UNK

REACTIONS (2)
  - Rash [Unknown]
  - Drug ineffective for unapproved indication [Unknown]

NARRATIVE: CASE EVENT DATE: 201505
